FAERS Safety Report 5234532-3 (Version None)
Quarter: 2007Q1

REPORT INFORMATION
  Report Type: 
  Country: None (occurrence: None)
  Receive Date: 20070209
  Receipt Date: 20070129
  Transmission Date: 20070707
  Serious: Yes (Other)
  Sender: FDA-Public Use
  Company Number: HQWYE932130JAN07

PATIENT
  Sex: Female

DRUGS (4)
  1. EFFEXOR XR [Suspect]
     Route: 048
     Dates: start: 20030101, end: 20060101
  2. EFFEXOR XR [Suspect]
     Dosage: ATTEMPT TO TAPER OFF EFFEXOR XR; UNSUCCESSFUL AND CONTINUED ON THERAPY AT UNKNOWN DOSE
     Route: 048
     Dates: start: 20060101
  3. RANITIDINE [Concomitant]
     Dosage: UNKNOWN
     Route: 048
  4. NEXIUM [Concomitant]
     Dosage: UNKNOWN
     Route: 048

REACTIONS (3)
  - DRUG EXPOSURE DURING PREGNANCY [None]
  - DRUG WITHDRAWAL SYNDROME [None]
  - PLACENTAL DISORDER [None]
